FAERS Safety Report 22590313 (Version 1)
Quarter: 2023Q2

REPORT INFORMATION
  Report Type: Spontaneous
  Country: PL (occurrence: PL)
  Receive Date: 20230612
  Receipt Date: 20230612
  Transmission Date: 20230722
  Serious: Yes (Other)
  Sender: FDA-Public Use
  Company Number: PL-MYLANLABS-2023M1024884

PATIENT
  Age: 56 Year
  Sex: Female
  Weight: 85 kg

DRUGS (6)
  1. SERTRALINE [Suspect]
     Active Substance: SERTRALINE HYDROCHLORIDE
     Indication: Depression
     Dosage: 100 MILLIGRAM, QD, 100 MG PER DAY, DAILY
     Route: 065
  2. DICLOFENAC [Interacting]
     Active Substance: DICLOFENAC
     Indication: Back pain
     Dosage: 150 MG, QD, 75 MG 2 PER DAY (2 X 75 MG)
     Route: 048
  3. KETOPROFEN [Interacting]
     Active Substance: KETOPROFEN
     Indication: Back pain
     Dosage: UNK
     Route: 061
  4. IBUPROFEN [Interacting]
     Active Substance: IBUPROFEN
     Indication: Back pain
     Dosage: UNK
     Route: 061
  5. ACETAMINOPHEN [Interacting]
     Active Substance: ACETAMINOPHEN
     Indication: Back pain
     Dosage: 3000 MG, QD, 1000MG TID
     Route: 065
  6. PRIDINOL [Interacting]
     Active Substance: PRIDINOL
     Indication: Back pain
     Dosage: 15 MILLIGRAM, QD, 5 MG TID (3 X 5 MG)
     Route: 065

REACTIONS (5)
  - Pain [Unknown]
  - Drug interaction [Unknown]
  - Back pain [Recovered/Resolved]
  - Burning sensation [Recovered/Resolved]
  - Medication error [Unknown]
